FAERS Safety Report 8304662-8 (Version None)
Quarter: 2012Q2

REPORT INFORMATION
  Report Type: 
  Country: None (occurrence: None)
  Receive Date: 20120423
  Receipt Date: 20120410
  Transmission Date: 20120825
  Serious: Yes (Hospitalization, Other)
  Sender: FDA-Public Use
  Company Number: PHHY2012FR031089

PATIENT
  Sex: Male

DRUGS (18)
  1. AMLODIPINE BESYLATE [Concomitant]
     Dosage: 10 MG, DAILY
  2. CINACALCET HYDROCHLORIDE [Concomitant]
  3. GLUCOPHAGE [Concomitant]
  4. SUTENT [Suspect]
     Indication: METASTASES TO LUNG
     Dosage: 37.5 MG, DAILY
     Route: 048
     Dates: start: 20111219, end: 20120201
  5. CRESTOR [Suspect]
     Dosage: 5 MG, DAILY
  6. ESOMEPRAZOLE MAGNESIUM [Concomitant]
     Dosage: 20 MG, DAILY
  7. NOVOMIX [Concomitant]
  8. CERTICAN [Suspect]
     Indication: RENAL TRANSPLANT
     Dosage: 2.5 MG, UNK
     Route: 048
     Dates: start: 20111101
  9. BACTRIM [Suspect]
     Dosage: UNK UKN, UNK
  10. PENTAMIDINE ISETHIONATE [Suspect]
  11. OMIX [Concomitant]
     Dosage: 0.4 MG, DAILY
  12. HYPERIUM [Concomitant]
  13. IMOVANE [Concomitant]
  14. ROVAMYCINE [Concomitant]
     Indication: PNEUMOCYSTIS JIROVECI PNEUMONIA
  15. SUTENT [Suspect]
     Dosage: 25 MG, DAILY
     Route: 048
  16. BACTRIM [Suspect]
     Dosage: UNK UKN, UNK
  17. PREDNISONE TAB [Concomitant]
     Dosage: 10 MG, DAILY
  18. EUPRESSYL [Concomitant]

REACTIONS (12)
  - INTERSTITIAL LUNG DISEASE [None]
  - HILAR LYMPHADENOPATHY [None]
  - DIARRHOEA [None]
  - COUGH [None]
  - ORTHOPNOEA [None]
  - PULMONARY ALVEOLAR HAEMORRHAGE [None]
  - LUNG DISORDER [None]
  - INFLUENZA [None]
  - DYSPNOEA [None]
  - RESTRICTIVE PULMONARY DISEASE [None]
  - HEPATOJUGULAR REFLUX [None]
  - NEUTROPENIA [None]
